FAERS Safety Report 6029020-0 (Version None)
Quarter: 2009Q1

REPORT INFORMATION
  Report Type: 
  Country: None (occurrence: None)
  Receive Date: 20090106
  Receipt Date: 20081223
  Transmission Date: 20090719
  Serious: No
  Sender: FDA-Public Use
  Company Number: US-JNJFOC-20081206601

PATIENT
  Sex: Female

DRUGS (3)
  1. INVEGA [Suspect]
     Indication: DRUG USE FOR UNKNOWN INDICATION
     Route: 048
  2. LITHIUM [Concomitant]
     Indication: DRUG USE FOR UNKNOWN INDICATION
  3. CELEXA [Concomitant]
     Indication: DRUG USE FOR UNKNOWN INDICATION

REACTIONS (3)
  - ALOPECIA [None]
  - DYSKINESIA [None]
  - HYPERSOMNIA [None]
